FAERS Safety Report 14326669 (Version 1)
Quarter: 2017Q4

REPORT INFORMATION
  Report Type: Spontaneous
  Country: US (occurrence: US)
  Receive Date: 20171227
  Receipt Date: 20171227
  Transmission Date: 20180321
  Serious: No
  Sender: FDA-Public Use
  Company Number: US-TEVA-2017-US-836410

PATIENT
  Sex: Female

DRUGS (1)
  1. NORTREL [Suspect]
     Active Substance: ETHINYL ESTRADIOL\NORETHINDRONE
     Dosage: DOSE STRENGTH: 1 MG / 0.035 MG

REACTIONS (2)
  - Menorrhagia [Not Recovered/Not Resolved]
  - Dysmenorrhoea [Unknown]
